FAERS Safety Report 8291606-0 (Version None)
Quarter: 2012Q2

REPORT INFORMATION
  Report Type: 
  Country: None (occurrence: None)
  Receive Date: 20120417
  Receipt Date: 20111128
  Transmission Date: 20120825
  Serious: No
  Sender: FDA-Public Use
  Company Number: US-ASTRAZENECA-2011SE72334

PATIENT
  Age: 75 Year
  Weight: 51.7 kg

DRUGS (2)
  1. NEXIUM [Suspect]
     Route: 048
  2. OTHER MEDICATIONS [Concomitant]

REACTIONS (1)
  - OSTEOPOROSIS [None]
